FAERS Safety Report 9375647 (Version 1)
Quarter: 2013Q2

REPORT INFORMATION
  Report Type: Other
  Country: GB (occurrence: GB)
  Receive Date: 20130628
  Receipt Date: 20130628
  Transmission Date: 20140414
  Serious: Yes (Other)
  Sender: FDA-Public Use
  Company Number: GB-ACTAVIS-2013-11544

PATIENT
  Age: 36 Year
  Sex: Female

DRUGS (1)
  1. RANITIDINE HYDROCHLORIDE (UNKNOWN) [Suspect]
     Indication: DYSPEPSIA
     Dosage: 75 MG, UNKNOWN
     Route: 048
     Dates: start: 201109, end: 201109

REACTIONS (7)
  - Hypersensitivity [Unknown]
  - Malaise [Unknown]
  - Erythema [Unknown]
  - Oedema [Unknown]
  - Rash macular [Unknown]
  - Dizziness [Unknown]
  - Vomiting [Unknown]
